FAERS Safety Report 23985449 (Version 1)
Quarter: 2024Q2

REPORT INFORMATION
  Report Type: Spontaneous
  Country: US (occurrence: US)
  Receive Date: 20240618
  Receipt Date: 20240618
  Transmission Date: 20240716
  Serious: No
  Sender: FDA-Public Use
  Company Number: US-MAYNE PHARMA-2023MYN000619

PATIENT

DRUGS (1)
  1. LEXETTE [Suspect]
     Active Substance: HALOBETASOL PROPIONATE
     Indication: Product used for unknown indication
     Dosage: UNK
     Route: 065

REACTIONS (3)
  - Skin irritation [Unknown]
  - Product container issue [Unknown]
  - Inappropriate schedule of product administration [Unknown]
